FAERS Safety Report 4591613-5 (Version None)
Quarter: 2005Q1

REPORT INFORMATION
  Report Type: 
  Country: None (occurrence: None)
  Receive Date: 20050225
  Receipt Date: 20041007
  Transmission Date: 20050727
  Serious: Yes (Death, Other)
  Sender: FDA-Public Use
  Company Number: PHNU2004DE03460

PATIENT
  Age: 43 Year
  Sex: Female

DRUGS (3)
  1. SOLCOSERYL [Concomitant]
     Indication: BONE DISORDER
     Route: 061
  2. AREDIA [Suspect]
     Indication: BREAST CANCER METASTATIC
     Dosage: ^MONTHLY^
     Dates: start: 20000701, end: 20020301
  3. ZOMETA [Suspect]
     Indication: BREAST CANCER METASTATIC
     Dosage: 4 MG, QMO
     Dates: start: 20020301, end: 20040101

REACTIONS (13)
  - BONE DEBRIDEMENT [None]
  - BONE DISORDER [None]
  - BONE INFECTION [None]
  - EPULIS [None]
  - GINGIVAL HYPERPLASIA [None]
  - HEPATIC FAILURE [None]
  - IMPAIRED HEALING [None]
  - INFLAMMATION [None]
  - LOCAL ANAESTHESIA [None]
  - METASTASES TO LIVER [None]
  - ORAL SURGERY [None]
  - SEQUESTRECTOMY [None]
  - SOFT TISSUE DISORDER [None]
